FAERS Safety Report 5120944-5 (Version None)
Quarter: 2006Q4

REPORT INFORMATION
  Report Type: 
  Country: None (occurrence: None)
  Receive Date: 20061003
  Receipt Date: 20061003
  Transmission Date: 20070319
  Serious: Yes (Other)
  Sender: FDA-Public Use
  Company Number: None

PATIENT
  Age: 45 Year
  Sex: Female
  Weight: 56.6996 kg

DRUGS (2)
  1. CIPRO [Suspect]
     Indication: SIALOADENITIS
     Dosage: 2 TABLESPOONS 3 TIMES DAILY PO
     Route: 048
     Dates: start: 20060712, end: 20060801
  2. CIPRO [Suspect]
     Indication: SIALOADENITIS
     Dosage: 2 TABLESPOONS 3 TIMES DAILY PO
     Route: 048
     Dates: start: 20060810, end: 20060820

REACTIONS (2)
  - TENDON DISORDER [None]
  - TENDON RUPTURE [None]
